FAERS Safety Report 4690813-3 (Version None)
Quarter: 2005Q2

REPORT INFORMATION
  Report Type: 
  Country: None (occurrence: None)
  Receive Date: 20050609
  Receipt Date: 20050530
  Transmission Date: 20051028
  Serious: Yes (Hospitalization)
  Sender: FDA-Public Use
  Company Number: 2005-00810

PATIENT
  Age: 68 Year
  Sex: Male

DRUGS (7)
  1. IMMUCYST [Suspect]
     Indication: BLADDER CANCER
     Dosage: (81.0 MG), I.VES, BLADDER
     Route: 043
     Dates: start: 20050317
  2. NIFEDIPINE [Concomitant]
  3. SIMVASTATIN [Concomitant]
  4. TAMSULOSIN HCI [Concomitant]
  5. ASPIRIN [Concomitant]
  6. GLIMEPIRIDE [Concomitant]
  7. UFT [Concomitant]

REACTIONS (10)
  - CHILLS [None]
  - DECREASED APPETITE [None]
  - DYSPNOEA [None]
  - FATIGUE [None]
  - HAEMATURIA [None]
  - HAEMOPTYSIS [None]
  - HYPERSENSITIVITY [None]
  - HYPONATRAEMIA [None]
  - INTERSTITIAL LUNG DISEASE [None]
  - PYREXIA [None]
